FAERS Safety Report 6664131-8 (Version None)
Quarter: 2010Q2

REPORT INFORMATION
  Report Type: 
  Country: None (occurrence: None)
  Receive Date: 20100401
  Receipt Date: 20100326
  Transmission Date: 20101027
  Serious: Yes (Hospitalization)
  Sender: FDA-Public Use
  Company Number: B0642485A

PATIENT
  Sex: Female

DRUGS (9)
  1. SERETIDE FORTE [Suspect]
     Indication: DRUG USE FOR UNKNOWN INDICATION
     Route: 055
  2. SERETIDE [Suspect]
     Indication: DRUG USE FOR UNKNOWN INDICATION
     Route: 055
     Dates: start: 20050101
  3. HYDROCORTISONE [Suspect]
     Route: 065
     Dates: start: 20100315
  4. CORTICOSTEROIDS [Suspect]
     Indication: DRUG USE FOR UNKNOWN INDICATION
     Route: 065
  5. BETAPRED [Suspect]
     Indication: DRUG USE FOR UNKNOWN INDICATION
     Dosage: .5MG PER DAY
     Route: 065
  6. CORTISONE [Concomitant]
  7. AERIUS [Concomitant]
     Dosage: 5MG PER DAY
  8. SINGULAIR [Concomitant]
     Route: 065
  9. ACETYLCYSTEINE [Concomitant]
     Dosage: 200MG THREE TIMES PER DAY
     Route: 065

REACTIONS (18)
  - ADRENAL INSUFFICIENCY [None]
  - ADRENAL SUPPRESSION [None]
  - BLOOD GLUCOSE INCREASED [None]
  - BRONCHIECTASIS [None]
  - CUSHINGOID [None]
  - FATIGUE [None]
  - GENERAL PHYSICAL HEALTH DETERIORATION [None]
  - HAIR GROWTH ABNORMAL [None]
  - HOSPITALISATION [None]
  - IMMUNODEFICIENCY [None]
  - INCREASED TENDENCY TO BRUISE [None]
  - INFECTION [None]
  - MUSCULAR WEAKNESS [None]
  - PIGMENTATION DISORDER [None]
  - PNEUMONIA [None]
  - PSYCHOMOTOR HYPERACTIVITY [None]
  - SKIN STRIAE [None]
  - WEIGHT INCREASED [None]
